FAERS Safety Report 19011361 (Version 2)
Quarter: 2021Q2

REPORT INFORMATION
  Report Type: Spontaneous
  Country: JP (occurrence: JP)
  Receive Date: 20210315
  Receipt Date: 20210506
  Transmission Date: 20210717
  Serious: Yes (Hospitalization)
  Sender: FDA-Public Use
  Company Number: JP-DSJP-DSJ-2021-107158AA

PATIENT
  Age: 54 Year
  Sex: Female
  Weight: 78 kg

DRUGS (6)
  1. AMLODIPINE                         /00972402/ [Suspect]
     Active Substance: AMLODIPINE BESYLATE
     Dosage: 345MG/DAY
     Route: 048
  2. OLMETEC OD [Suspect]
     Active Substance: OLMESARTAN MEDOXOMIL
     Indication: PRODUCT USED FOR UNKNOWN INDICATION
     Dosage: 20MG/DAY
     Route: 048
  3. ETIZOLAM ^FUJINAGA^ [Suspect]
     Active Substance: ETIZOLAM
     Dosage: 4MG/DAY
     Route: 048
  4. AMLODIPINE                         /00972402/ [Suspect]
     Active Substance: AMLODIPINE BESYLATE
     Dosage: 5MG/DAY
     Route: 048
  5. OLMETEC OD [Suspect]
     Active Substance: OLMESARTAN MEDOXOMIL
     Dosage: 340MG/DAY
     Route: 048
  6. BROTIZOLAM [Suspect]
     Active Substance: BROTIZOLAM
     Dosage: 0.75MG/DAY
     Route: 048

REACTIONS (3)
  - Pneumonia [Recovering/Resolving]
  - Hypotension [Recovered/Resolved]
  - Overdose [Unknown]
